FAERS Safety Report 6494581-4 (Version None)
Quarter: 2009Q4

REPORT INFORMATION
  Report Type: 
  Country: None (occurrence: None)
  Receive Date: 20091214
  Receipt Date: 20090319
  Transmission Date: 20100525
  Serious: No
  Sender: FDA-Public Use
  Company Number: US-BRISTOL-MYERS SQUIBB COMPANY-14531750

PATIENT
  Sex: Male

DRUGS (3)
  1. ABILIFY [Suspect]
     Indication: DEPRESSION
     Dosage: INCREASED TO 5MG ON 26FEB09;28FEB 2MG;DISCONTINUED ON 01MAR09;ABILIFY 5MG LOT#8L38651A;EXP:11/2011
     Dates: start: 20090226, end: 20090301
  2. ZOLOFT [Suspect]
     Indication: DEPRESSION
     Dates: start: 20090226
  3. WELLBUTRIN [Suspect]
     Indication: DEPRESSION
     Dates: start: 20090226

REACTIONS (3)
  - CONFUSIONAL STATE [None]
  - MEMORY IMPAIRMENT [None]
  - TREMOR [None]
